FAERS Safety Report 23029364 (Version 1)
Quarter: 2023Q4

REPORT INFORMATION
  Report Type: Spontaneous
  Country: HK (occurrence: HK)
  Receive Date: 20231004
  Receipt Date: 20231004
  Transmission Date: 20240110
  Serious: Yes (Other)
  Sender: FDA-Public Use
  Company Number: HK-PFIZER INC-PV202300163204

PATIENT

DRUGS (2)
  1. LORLATINIB [Suspect]
     Active Substance: LORLATINIB
     Indication: Non-small cell lung cancer
     Dosage: 100 MG
  2. LORLATINIB [Suspect]
     Active Substance: LORLATINIB
     Dosage: 75 MG

REACTIONS (1)
  - Diabetic ketoacidosis [Unknown]
